FAERS Safety Report 18805572 (Version 2)
Quarter: 2021Q1

REPORT INFORMATION
  Report Type: Spontaneous
  Country: PL (occurrence: PL)
  Receive Date: 20210129
  Receipt Date: 20210220
  Transmission Date: 20210419
  Serious: Yes (Hospitalization)
  Sender: FDA-Public Use
  Company Number: PL-ROCHE-2755673

PATIENT
  Age: 70 Year
  Sex: Male
  Weight: 85 kg

DRUGS (3)
  1. TOCILIZUMAB. [Suspect]
     Active Substance: TOCILIZUMAB
     Indication: COVID-19 PNEUMONIA
     Route: 042
     Dates: start: 20210116, end: 20210117
  2. MEROPEN [Suspect]
     Active Substance: MEROPENEM
     Indication: COVID-19 PNEUMONIA
     Route: 042
     Dates: start: 20210116
  3. LEVONOR (POLAND) [Concomitant]
     Indication: CIRCULATORY COLLAPSE
     Dosage: CONTINUEOUS INFUSION DEPENDING ON BP, 15?29 /JAN/2021
     Dates: start: 20210115, end: 20210129

REACTIONS (3)
  - Inflammatory marker decreased [Recovering/Resolving]
  - Off label use [Unknown]
  - Intentional product use issue [Unknown]

NARRATIVE: CASE EVENT DATE: 20210116
